FAERS Safety Report 15898794 (Version 1)
Quarter: 2019Q1

REPORT INFORMATION
  Report Type: Report from Study
  Country: CA (occurrence: CA)
  Receive Date: 20190201
  Receipt Date: 20190201
  Transmission Date: 20190417
  Serious: Yes (Other)
  Sender: FDA-Public Use
  Company Number: CA-ROCHE-2244925

PATIENT
  Age: 41 Year
  Sex: Male

DRUGS (2)
  1. OCREVUS [Suspect]
     Active Substance: OCRELIZUMAB
     Indication: PRIMARY PROGRESSIVE MULTIPLE SCLEROSIS
     Dosage: 300 MG AT DAY 0 AND 14, THEN 600 MG EVERY 6 MONTH?LIQUID
     Route: 042
     Dates: start: 20180620
  2. PREGABALIN. [Concomitant]
     Active Substance: PREGABALIN
     Indication: NEURALGIA
     Dosage: YES
     Route: 065

REACTIONS (13)
  - Feeling abnormal [Not Recovered/Not Resolved]
  - Sleep disorder [Not Recovered/Not Resolved]
  - Neuralgia [Not Recovered/Not Resolved]
  - Peripheral coldness [Not Recovered/Not Resolved]
  - Visual impairment [Not Recovered/Not Resolved]
  - Multiple sclerosis [Not Recovered/Not Resolved]
  - Nasopharyngitis [Recovered/Resolved]
  - Headache [Not Recovered/Not Resolved]
  - Rhinorrhoea [Recovered/Resolved]
  - Fatigue [Not Recovered/Not Resolved]
  - Vision blurred [Not Recovered/Not Resolved]
  - Muscle spasms [Not Recovered/Not Resolved]
  - Cough [Recovered/Resolved]

NARRATIVE: CASE EVENT DATE: 201809
